FAERS Safety Report 5195280-1 (Version None)
Quarter: 2006Q4

REPORT INFORMATION
  Report Type: 
  Country: None (occurrence: None)
  Receive Date: 20061229
  Receipt Date: 20061201
  Transmission Date: 20070319
  Serious: Yes (Death, Other)
  Sender: FDA-Public Use
  Company Number: IN-PFIZER INC-2006150323

PATIENT
  Age: 17 Year
  Sex: Male
  Weight: 50 kg

DRUGS (14)
  1. MAGNEX [Suspect]
     Indication: LIVER DISORDER
     Route: 042
     Dates: start: 20061122, end: 20061123
  2. MAGNEX [Suspect]
     Route: 042
     Dates: start: 20061124, end: 20061124
  3. MAGNEX [Suspect]
     Route: 042
     Dates: start: 20061125, end: 20061125
  4. DALACIN S [Suspect]
     Indication: LIVER DISORDER
     Route: 042
     Dates: start: 20061122, end: 20061123
  5. DALACIN S [Suspect]
     Route: 042
     Dates: start: 20061124, end: 20061124
  6. ESOMEPRAZOLE MAGNESIUM [Concomitant]
     Route: 042
  7. CALCIUM GLUCONATE [Concomitant]
     Route: 042
  8. SODIUM BICARBONATE [Concomitant]
     Route: 042
  9. VITAMIN K [Concomitant]
     Dates: start: 20061122, end: 20061125
  10. DOPAMINE HCL [Concomitant]
     Dates: start: 20061122, end: 20061124
  11. METRONIDAZOLE [Concomitant]
     Route: 042
     Dates: start: 20061124
  12. DRUG, UNSPECIFIED [Concomitant]
     Dates: start: 20061122, end: 20061124
  13. BOTROPASE [Concomitant]
     Route: 042
     Dates: start: 20061122, end: 20061125
  14. MANNITOL [Concomitant]
     Route: 042
     Dates: start: 20061123

REACTIONS (4)
  - GRAND MAL CONVULSION [None]
  - PLATELET COUNT DECREASED [None]
  - RENAL FAILURE ACUTE [None]
  - RESPIRATORY ARREST [None]
